FAERS Safety Report 13916024 (Version 2)
Quarter: 2018Q1

REPORT INFORMATION
  Report Type: Spontaneous
  Country: US (occurrence: US)
  Receive Date: 20170829
  Receipt Date: 20180205
  Transmission Date: 20180508
  Serious: No
  Sender: FDA-Public Use
  Company Number: US-ASTRAZENECA-2017SE85873

PATIENT
  Age: 806 Month
  Sex: Female
  Weight: 46.7 kg

DRUGS (4)
  1. CALCIUM [Concomitant]
     Active Substance: CALCIUM
  2. SYMBICORT [Suspect]
     Active Substance: BUDESONIDE\FORMOTEROL FUMARATE DIHYDRATE
     Indication: ASTHMA
     Dosage: 160/4.5 MICROGRAMS, TWO INHALATIONS TWICE DAILY
     Route: 055
     Dates: start: 201701
  3. VITAMINS NOS [Concomitant]
     Active Substance: VITAMINS
  4. SYMBICORT [Suspect]
     Active Substance: BUDESONIDE\FORMOTEROL FUMARATE DIHYDRATE
     Indication: CHRONIC OBSTRUCTIVE PULMONARY DISEASE
     Dosage: 160/4.5 MICROGRAMS, TWO INHALATIONS TWICE DAILY
     Route: 055
     Dates: start: 201701

REACTIONS (2)
  - Device failure [Unknown]
  - Dysgeusia [Unknown]

NARRATIVE: CASE EVENT DATE: 201701
